FAERS Safety Report 9515473 (Version 1)
Quarter: 2013Q3

REPORT INFORMATION
  Report Type: Spontaneous
  Country: BR (occurrence: BR)
  Receive Date: 20130911
  Receipt Date: 20130911
  Transmission Date: 20140515
  Serious: Yes (Hospitalization, Other)
  Sender: FDA-Public Use
  Company Number: BR-PFIZER INC-2013260881

PATIENT
  Age: 81 Year
  Sex: Female

DRUGS (3)
  1. FRONTAL [Suspect]
     Indication: ANXIETY
     Dosage: 1 MG (ONE TABLET), 1X/DAY
     Route: 048
     Dates: start: 19870909
  2. FRONTAL [Suspect]
     Indication: AGITATION
  3. DIOSMIN [Concomitant]
     Indication: VARICOSE VEIN
     Dosage: ONE TABLET, 1X/DAY
     Dates: start: 20080909

REACTIONS (7)
  - Fall [Unknown]
  - Hip fracture [Unknown]
  - Pulmonary embolism [Unknown]
  - Syncope [Unknown]
  - Nightmare [Recovered/Resolved]
  - Blood cholesterol increased [Not Recovered/Not Resolved]
  - Off label use [Unknown]
